FAERS Safety Report 5055453-5 (Version None)
Quarter: 2006Q3

REPORT INFORMATION
  Report Type: 
  Country: None (occurrence: None)
  Receive Date: 20060714
  Receipt Date: 20060626
  Transmission Date: 20061208
  Serious: Yes (Hospitalization)
  Sender: FDA-Public Use
  Company Number: 2006RR-02841

PATIENT
  Age: 65 Year
  Sex: Male

DRUGS (3)
  1. SIMVASTATIN [Suspect]
     Indication: HYPERCHOLESTEROLAEMIA
     Dosage: 20 MG, QD, ORAL
     Route: 048
     Dates: start: 19970101
  2. ATORVASTATIN CALCIUM [Suspect]
     Indication: HYPERCHOLESTEROLAEMIA
     Dosage: SEE IMAGE
     Route: 048
     Dates: end: 20000901
  3. DILTIAZEM RPG LP PROLONGED RELEASE CAPSULE [Concomitant]

REACTIONS (4)
  - DRUG EFFECT DECREASED [None]
  - HAEMATOMA [None]
  - MUSCULOSKELETAL PAIN [None]
  - TENDONITIS [None]
